FAERS Safety Report 4658753-3 (Version None)
Quarter: 2005Q2

REPORT INFORMATION
  Report Type: 
  Country: None (occurrence: None)
  Receive Date: 20050509
  Receipt Date: 20050430
  Transmission Date: 20051028
  Serious: Yes (Hospitalization)
  Sender: FDA-Public Use
  Company Number: 2005-04-1136

PATIENT
  Age: 69 Year
  Sex: Male

DRUGS (7)
  1. TEMODAL [Suspect]
     Indication: GLIOBLASTOMA
     Dosage: SEE IMAGE
     Route: 048
     Dates: start: 20050210, end: 20050214
  2. TEMODAL [Suspect]
     Indication: GLIOBLASTOMA
     Dosage: SEE IMAGE
     Route: 048
     Dates: start: 20050321, end: 20050325
  3. TEMODAL [Suspect]
     Indication: GLIOBLASTOMA
     Dosage: SEE IMAGE
     Route: 048
     Dates: start: 20050210, end: 20050401
  4. TEMODAL [Suspect]
     Indication: GLIOBLASTOMA
     Dosage: SEE IMAGE
     Route: 048
     Dates: start: 20050401, end: 20050401
  5. FOLIC ACID [Concomitant]
  6. DIPHANTOINE [Concomitant]
  7. KEPPRA [Concomitant]

REACTIONS (2)
  - FEBRILE NEUTROPENIA [None]
  - THROMBOTIC THROMBOCYTOPENIC PURPURA [None]
